FAERS Safety Report 4690838-8 (Version None)
Quarter: 2005Q2

REPORT INFORMATION
  Report Type: 
  Country: None (occurrence: None)
  Receive Date: 20050614
  Receipt Date: 20050531
  Transmission Date: 20051028
  Serious: Yes (Other)
  Sender: FDA-Public Use
  Company Number: 2005078809

PATIENT
  Age: 56 Year
  Sex: Male
  Weight: 77.1115 kg

DRUGS (1)
  1. BEN-GAY ULTRA (MENTHOL, CAMPHOR, METHYL SALICYLATE) [Suspect]
     Indication: BACK PAIN
     Dosage: ONE APPL ONE, TOPICAL
     Route: 061
     Dates: start: 20050520, end: 20050520

REACTIONS (9)
  - ANXIETY [None]
  - BACK PAIN [None]
  - BLISTER [None]
  - BLOOD PRESSURE INCREASED [None]
  - BODY TEMPERATURE DECREASED [None]
  - BURNING SENSATION [None]
  - CHEMICAL BURN OF SKIN [None]
  - DRUG HYPERSENSITIVITY [None]
  - ERYTHEMA [None]
